FAERS Safety Report 17117815 (Version 3)
Quarter: 2020Q1

REPORT INFORMATION
  Report Type: Report from Study
  Country: CN (occurrence: CN)
  Receive Date: 20191205
  Receipt Date: 20200122
  Transmission Date: 20200409
  Serious: Yes (Life-Threatening)
  Sender: FDA-Public Use
  Company Number: CN-JNJFOC-20191142702

PATIENT
  Age: 25 Year
  Sex: Female
  Weight: 56 kg

DRUGS (7)
  1. CAPREOMYCIN [Suspect]
     Active Substance: CAPREOMYCIN
     Indication: TUBERCULOSIS
     Dosage: 6-MONTH CULTIVATION NEGATIVE
     Route: 042
     Dates: start: 20180917, end: 20190417
  2. LINEZOLID. [Suspect]
     Active Substance: LINEZOLID
     Indication: TUBERCULOSIS
     Route: 048
     Dates: start: 20180828
  3. BEDAQUILINE [Suspect]
     Active Substance: BEDAQUILINE
     Indication: TUBERCULOSIS
     Dosage: DOSE ADJUSTMENT
     Route: 048
     Dates: start: 20180917, end: 20180929
  4. PROTIONAMIDE [Suspect]
     Active Substance: PROTIONAMIDE
     Indication: TUBERCULOSIS
     Route: 048
     Dates: start: 20180824
  5. PYRAZINAMIDE. [Suspect]
     Active Substance: PYRAZINAMIDE
     Indication: TUBERCULOSIS
     Route: 048
     Dates: start: 20180908
  6. BEDAQUILINE [Suspect]
     Active Substance: BEDAQUILINE
     Dosage: 6-MONTH CULTIVATION NEGATIVE
     Route: 048
     Dates: start: 20180927, end: 20190304
  7. CYCLOSERINE. [Suspect]
     Active Substance: CYCLOSERINE
     Indication: TUBERCULOSIS
     Dosage: 6-MONTH CULTIVATION NEGATIVE
     Route: 048
     Dates: start: 20180917

REACTIONS (1)
  - Electrocardiogram QT prolonged [Recovering/Resolving]

NARRATIVE: CASE EVENT DATE: 20190304
